FAERS Safety Report 13012724 (Version 1)
Quarter: 2016Q4

REPORT INFORMATION
  Report Type: Spontaneous
  Country: US (occurrence: US)
  Receive Date: 20161209
  Receipt Date: 20161209
  Transmission Date: 20170207
  Serious: No
  Sender: FDA-Public Use
  Company Number: US-TEVA-691266USA

PATIENT
  Sex: Female

DRUGS (1)
  1. GUAIFENESIN EXTENDED RELEASE [Suspect]
     Active Substance: GUAIFENESIN
     Indication: PRODUCT USED FOR UNKNOWN INDICATION
     Route: 048
     Dates: start: 201608

REACTIONS (3)
  - Dry mouth [Unknown]
  - Headache [Unknown]
  - Dry throat [Unknown]

NARRATIVE: CASE EVENT DATE: 201608
